FAERS Safety Report 6748372-7 (Version None)
Quarter: 2010Q2

REPORT INFORMATION
  Report Type: 
  Country: None (occurrence: None)
  Receive Date: 20100601
  Receipt Date: 20100526
  Transmission Date: 20101027
  Serious: No
  Sender: FDA-Public Use
  Company Number: 2009BI028750

PATIENT
  Age: 43 Year
  Sex: Male

DRUGS (2)
  1. TYSABRI [Suspect]
     Indication: MULTIPLE SCLEROSIS
     Route: 042
     Dates: start: 20071210, end: 20081110
  2. TYSABRI [Suspect]
     Route: 042
     Dates: start: 20090902

REACTIONS (8)
  - BALANCE DISORDER [None]
  - COGNITIVE DISORDER [None]
  - DEAFNESS [None]
  - GAIT DISTURBANCE [None]
  - GASTROINTESTINAL ULCER HAEMORRHAGE [None]
  - MULTIPLE SCLEROSIS RELAPSE [None]
  - SINUSITIS [None]
  - VISION BLURRED [None]
